FAERS Safety Report 4507753-2 (Version None)
Quarter: 2004Q4

REPORT INFORMATION
  Report Type: 
  Country: None (occurrence: None)
  Receive Date: 20041123
  Receipt Date: 20041112
  Transmission Date: 20050328
  Serious: Yes (Other)
  Sender: FDA-Public Use
  Company Number: 200418765US

PATIENT
  Sex: Male

DRUGS (1)
  1. LOVENOX [Suspect]
     Dosage: DOSE: NOT PROVIDED

REACTIONS (3)
  - HAEMATOMA [None]
  - POSTOPERATIVE WOUND COMPLICATION [None]
  - WOUND DEHISCENCE [None]
